FAERS Safety Report 8535759-5 (Version None)
Quarter: 2012Q2

REPORT INFORMATION
  Report Type: 
  Country: None (occurrence: None)
  Receive Date: 20120412
  Receipt Date: 20090105
  Transmission Date: 20120825
  Serious: Yes (Other)
  Sender: FDA-Public Use
  Company Number: PHEH2009US00444

PATIENT
  Sex: Female

DRUGS (4)
  1. ESTRADIOL AND NORETHINDRONE ACETATE [Suspect]
  2. PREMPRO [Suspect]
  3. CLIMARA [Suspect]
  4. ESTALIS COMBIPATCH (ESTRADIOL, NORETHISTERONE ACETATE) TRANS-THERAPEUT [Suspect]

REACTIONS (1)
  - BREAST CANCER [None]
